FAERS Safety Report 15381142 (Version 2)
Quarter: 2018Q4

REPORT INFORMATION
  Report Type: Spontaneous
  Country: US (occurrence: US)
  Receive Date: 20180913
  Receipt Date: 20181030
  Transmission Date: 20190204
  Serious: Yes (Other)
  Sender: FDA-Public Use
  Company Number: US-ASTELLAS-2018US028960

PATIENT
  Age: 95 Year
  Sex: Male

DRUGS (2)
  1. XTANDI [Suspect]
     Active Substance: ENZALUTAMIDE
     Route: 065
  2. XTANDI [Suspect]
     Active Substance: ENZALUTAMIDE
     Indication: PROSTATE CANCER
     Route: 065

REACTIONS (2)
  - Cerebrovascular accident [Unknown]
  - Muscle spasms [Unknown]

NARRATIVE: CASE EVENT DATE: 20181017
